FAERS Safety Report 5134230-0 (Version None)
Quarter: 2006Q4

REPORT INFORMATION
  Report Type: 
  Country: None (occurrence: None)
  Receive Date: 20061019
  Receipt Date: 20060830
  Transmission Date: 20070319
  Serious: Yes (Hospitalization, Disabling, Other)
  Sender: FDA-Public Use
  Company Number: 2006095574

PATIENT
  Age: 53 Year
  Sex: Female
  Weight: 97.0698 kg

DRUGS (2)
  1. BEXTRA [Suspect]
     Indication: ARTHRITIS
     Dosage: 40 MG (20 MG,2 IN 1 D)
     Dates: start: 20010101, end: 20040101
  2. BEXTRA [Suspect]
     Indication: BACK PAIN
     Dosage: 40 MG (20 MG,2 IN 1 D)
     Dates: start: 20010101, end: 20040101

REACTIONS (4)
  - CEREBROVASCULAR ACCIDENT [None]
  - CEREBROVASCULAR DISORDER [None]
  - INJURY [None]
  - INTRACRANIAL ANEURYSM [None]
